FAERS Safety Report 7455335-5 (Version None)
Quarter: 2011Q2

REPORT INFORMATION
  Report Type: 
  Country: None (occurrence: None)
  Receive Date: 20110503
  Receipt Date: 20110428
  Transmission Date: 20111010
  Serious: Yes (Other)
  Sender: FDA-Public Use
  Company Number: DE-B.I. PHARMACEUTICALS,INC./RIDGEFIELD-2011-DE-02773DE

PATIENT
  Sex: Female
  Weight: 97 kg

DRUGS (5)
  1. SEROQUEL [Suspect]
     Dosage: 800 MG
     Route: 048
  2. TAXILAN [Suspect]
     Dosage: 100 MG
     Route: 048
  3. FLUNITRAZEPAM [Suspect]
     Dosage: 2 MG
     Route: 048
  4. AGGRENOX [Suspect]
     Dosage: 2 ANZ
     Route: 048
  5. VALPROAT [Suspect]
     Dosage: 3000 MG
     Route: 048

REACTIONS (1)
  - ACCIDENTAL EXPOSURE [None]
